FAERS Safety Report 16342702 (Version 6)
Quarter: 2019Q3

REPORT INFORMATION
  Report Type: Spontaneous
  Country: JP (occurrence: JP)
  Receive Date: 20190522
  Receipt Date: 20190911
  Transmission Date: 20191004
  Serious: Yes (Death, Hospitalization, Other)
  Sender: FDA-Public Use
  Company Number: JP-GILEAD-2019-0408200

PATIENT
  Age: 70 Year
  Sex: Male

DRUGS (1)
  1. EPCLUSA [Suspect]
     Active Substance: SOFOSBUVIR\VELPATASVIR
     Indication: CHRONIC HEPATITIS C
     Dosage: UNK
     Route: 065
     Dates: start: 20190403, end: 20190612

REACTIONS (4)
  - Ascites [Not Recovered/Not Resolved]
  - Liver carcinoma ruptured [Recovered/Resolved]
  - Hepatic failure [Fatal]
  - Hepatocellular carcinoma [Unknown]

NARRATIVE: CASE EVENT DATE: 20190609
